FAERS Safety Report 10442276 (Version 1)
Quarter: 2014Q3

REPORT INFORMATION
  Report Type: Spontaneous
  Country: NL (occurrence: NL)
  Receive Date: 20140909
  Receipt Date: 20140909
  Transmission Date: 20150326
  Serious: Yes (Life-Threatening, Other)
  Sender: FDA-Public Use
  Company Number: NL-MYLAN-2014M1003842

PATIENT

DRUGS (8)
  1. SUXAMETHONIUM CHLORIDE [Suspect]
     Active Substance: SUCCINYLCHOLINE CHLORIDE
     Indication: NEUROLEPTIC MALIGNANT SYNDROME
     Dosage: 1.2MG/KG
     Route: 065
  2. ETOMIDATE. [Concomitant]
     Active Substance: ETOMIDATE
     Indication: NEUROLEPTIC MALIGNANT SYNDROME
     Route: 065
  3. QUETIAPINE [Suspect]
     Active Substance: QUETIAPINE
     Indication: OFF LABEL USE
  4. FLURAZEPAM [Suspect]
     Active Substance: FLURAZEPAM\FLURAZEPAM HYDROCHLORIDE
     Indication: OFF LABEL USE
  5. INSULIN                            /00646001/ [Concomitant]
     Active Substance: INSULIN NOS
     Indication: SUICIDE ATTEMPT
     Route: 065
  6. DULOXETINE [Concomitant]
     Active Substance: DULOXETINE
     Indication: SUICIDE ATTEMPT
     Route: 065
  7. FLURAZEPAM [Suspect]
     Active Substance: FLURAZEPAM\FLURAZEPAM HYDROCHLORIDE
     Indication: SUICIDE ATTEMPT
     Route: 065
  8. QUETIAPINE [Suspect]
     Active Substance: QUETIAPINE
     Indication: SUICIDE ATTEMPT
     Route: 065

REACTIONS (5)
  - Neuroleptic malignant syndrome [Recovering/Resolving]
  - Hyperkalaemia [Recovered/Resolved]
  - Ventricular fibrillation [Recovered/Resolved]
  - Toxicity to various agents [Unknown]
  - Depressed level of consciousness [Unknown]
